FAERS Safety Report 12596575 (Version 1)
Quarter: 2016Q3

REPORT INFORMATION
  Report Type: Spontaneous
  Country: KR (occurrence: KR)
  Receive Date: 20160727
  Receipt Date: 20160727
  Transmission Date: 20161109
  Serious: Yes (Other)
  Sender: FDA-Public Use
  Company Number: KR-ALVOGEN-2016-ALVOGEN-026628

PATIENT
  Age: 40 Year
  Sex: Female

DRUGS (5)
  1. HYDRALAZINE [Suspect]
     Active Substance: HYDRALAZINE HYDROCHLORIDE
     Indication: PRE-ECLAMPSIA
     Route: 042
  2. AMLODIPINE [Suspect]
     Active Substance: AMLODIPINE BESYLATE
     Indication: HYPERTENSION
  3. ATENOLOL. [Suspect]
     Active Substance: ATENOLOL
     Indication: HYPERTENSION
  4. EPOETIN ALFA [Suspect]
     Active Substance: ERYTHROPOIETIN
     Dosage: 240.0/74.8 IU/KG/WK
     Route: 064
  5. IRON [Suspect]
     Active Substance: IRON
     Indication: MINERAL SUPPLEMENTATION
     Dosage: 0/50.0/50.0 MG/WK BEFORE THE PREGNANCY/AT THE START OF MIDTRIMESTER/AT THE END OF PREGNANCY

REACTIONS (2)
  - Premature rupture of membranes [Recovered/Resolved]
  - Exposure during pregnancy [Recovered/Resolved]
